FAERS Safety Report 10416429 (Version 1)
Quarter: 2014Q3

REPORT INFORMATION
  Report Type: Spontaneous
  Country: US (occurrence: US)
  Receive Date: 20140828
  Receipt Date: 20140828
  Transmission Date: 20150326
  Serious: No
  Sender: FDA-Public Use
  Company Number: US-PURDUE-USA-2014-0114940

PATIENT
  Sex: Female

DRUGS (1)
  1. INTERMEZZO [Suspect]
     Active Substance: ZOLPIDEM TARTRATE
     Indication: PRODUCT USED FOR UNKNOWN INDICATION
     Dosage: 1.75 MG, UNK

REACTIONS (4)
  - Wrong technique in drug usage process [Unknown]
  - Drug effect decreased [Unknown]
  - Product taste abnormal [Unknown]
  - Drug effect delayed [Unknown]
